FAERS Safety Report 18004836 (Version 1)
Quarter: 2020Q3

REPORT INFORMATION
  Report Type: Spontaneous
  Country: US (occurrence: US)
  Receive Date: 20200709
  Receipt Date: 20200709
  Transmission Date: 20201103
  Serious: No
  Sender: FDA-Public Use
  Company Number: None

PATIENT

DRUGS (2)
  1. OZEMPIC [Suspect]
     Active Substance: SEMAGLUTIDE
     Dosage: ?          OTHER ROUTE:INSULIN PEN?
  2. OZEMPIC [Suspect]
     Active Substance: SEMAGLUTIDE
     Dosage: ?          OTHER ROUTE:INSULIN PEN?

REACTIONS (1)
  - Product dispensing error [None]
